FAERS Safety Report 5987207-7 (Version None)
Quarter: 2008Q4

REPORT INFORMATION
  Report Type: 
  Country: None (occurrence: None)
  Receive Date: 20081209
  Receipt Date: 20081202
  Transmission Date: 20090506
  Serious: Yes (Death, Life-Threatening, Hospitalization, Disabling)
  Sender: FDA-Public Use
  Company Number: PHHO2008KR14313

PATIENT
  Sex: Female

DRUGS (4)
  1. ERL 080A ERL+TAB [Suspect]
     Indication: RENAL TRANSPLANT
     Dosage: 1120MG
     Route: 048
     Dates: start: 20010411, end: 20080901
  2. MYFORTIC [Suspect]
     Indication: RENAL TRANSPLANT
     Dosage: UNK
     Dates: start: 20080901, end: 20081019
  3. TACROLIMUS [Suspect]
     Indication: RENAL TRANSPLANT
     Dosage: UNK
     Dates: start: 20080818, end: 20081024
  4. NEORAL [Concomitant]
     Dosage: UNK
     Dates: end: 20080818

REACTIONS (18)
  - BRAIN ABSCESS [None]
  - CEREBRAL HAEMORRHAGE [None]
  - CONFUSIONAL STATE [None]
  - COUGH [None]
  - GASTRITIS [None]
  - GASTRITIS ATROPHIC [None]
  - HYPOXIA [None]
  - INFLAMMATION [None]
  - INTERSTITIAL LUNG DISEASE [None]
  - LUNG DISORDER [None]
  - LUNG INFILTRATION [None]
  - MECHANICAL VENTILATION [None]
  - MOOD ALTERED [None]
  - NEUROLOGICAL SYMPTOM [None]
  - PNEUMOCYSTIS JIROVECI PNEUMONIA [None]
  - PNEUMONIA PRIMARY ATYPICAL [None]
  - PRODUCTIVE COUGH [None]
  - PYREXIA [None]
